FAERS Safety Report 20987173 (Version 1)
Quarter: 2022Q2

REPORT INFORMATION
  Report Type: Spontaneous
  Country: US (occurrence: None)
  Receive Date: 20220619
  Receipt Date: 20220619
  Transmission Date: 20220721
  Serious: Yes (Disabling, Other)
  Sender: FDA-Public Use
  Company Number: None

PATIENT
  Age: 27 Year
  Sex: Female
  Weight: 69.75 kg

DRUGS (4)
  1. PROZAC [Suspect]
     Active Substance: FLUOXETINE HYDROCHLORIDE
     Indication: Depression
     Dosage: OTHER QUANTITY : 1 CAPSULE(S);?
     Route: 048
     Dates: start: 20210720, end: 20220216
  2. PROZAC [Suspect]
     Active Substance: FLUOXETINE HYDROCHLORIDE
     Indication: Anger
  3. PROZAC [Suspect]
     Active Substance: FLUOXETINE HYDROCHLORIDE
     Indication: Anxiety
  4. VYVANSE [Concomitant]
     Active Substance: LISDEXAMFETAMINE DIMESYLATE

REACTIONS (24)
  - Atonic seizures [None]
  - Respiratory disorder [None]
  - Disability [None]
  - Cognitive disorder [None]
  - Aphasia [None]
  - Nystagmus [None]
  - Loss of consciousness [None]
  - Muscular weakness [None]
  - Confusional state [None]
  - Nervous system disorder [None]
  - Conversion disorder [None]
  - Therapy cessation [None]
  - Antinuclear antibody increased [None]
  - Cardiolipin antibody positive [None]
  - Postural orthostatic tachycardia syndrome [None]
  - Bell^s phenomenon [None]
  - Arthralgia [None]
  - Alopecia [None]
  - Vision blurred [None]
  - Hyperhidrosis [None]
  - Urine abnormality [None]
  - Dizziness [None]
  - Stomatitis [None]
  - Diplopia [None]

NARRATIVE: CASE EVENT DATE: 20210801
